FAERS Safety Report 25331373 (Version 2)
Quarter: 2025Q4

REPORT INFORMATION
  Report Type: Spontaneous
  Country: US (occurrence: US)
  Receive Date: 20250519
  Receipt Date: 20251017
  Transmission Date: 20260118
  Serious: No
  Sender: BRISTOL-MYERS SQUIBB COMPANY
  Company Number: US-BRISTOL-MYERS SQUIBB COMPANY-2025-071693

PATIENT
  Age: 81 Year
  Sex: Male
  Weight: 75.1 kg

DRUGS (1)
  1. POMALYST [Suspect]
     Active Substance: POMALIDOMIDE
     Indication: Plasma cell myeloma
     Dosage: 2WKSON/2WKSOFF
     Dates: start: 20250423

REACTIONS (2)
  - Dizziness [Unknown]
  - Memory impairment [Unknown]
